FAERS Safety Report 4962446-2 (Version None)
Quarter: 2006Q1

REPORT INFORMATION
  Report Type: 
  Country: None (occurrence: None)
  Receive Date: 20060329
  Receipt Date: 20060315
  Transmission Date: 20060701
  Serious: Yes (Death)
  Sender: FDA-Public Use
  Company Number: 2006SP001236

PATIENT
  Sex: Male

DRUGS (2)
  1. LUNESTA [Suspect]
     Dates: start: 20060301, end: 20060301
  2. REMERON [Suspect]
     Dates: start: 20060301, end: 20060301

REACTIONS (1)
  - DEATH [None]
